FAERS Safety Report 4424528-3 (Version None)
Quarter: 2004Q3

REPORT INFORMATION
  Report Type: 
  Country: None (occurrence: None)
  Receive Date: 20040812
  Receipt Date: 20040805
  Transmission Date: 20050211
  Serious: Yes (Life-Threatening)
  Sender: FDA-Public Use
  Company Number: LV-ROCHE-376751

PATIENT
  Age: 50 Year
  Sex: Male

DRUGS (3)
  1. FUZEON [Suspect]
     Route: 058
     Dates: start: 20040219
  2. STOCRIN [Concomitant]
  3. DIDANOSINE [Concomitant]

REACTIONS (2)
  - ARTERITIS [None]
  - CEREBROVASCULAR ACCIDENT [None]
